FAERS Safety Report 9416080 (Version 1)
Quarter: 2013Q3

REPORT INFORMATION
  Report Type: Spontaneous
  Country: US (occurrence: None)
  Receive Date: 20130723
  Receipt Date: 20130723
  Transmission Date: 20140515
  Serious: Yes (Hospitalization)
  Sender: FDA-Public Use
  Company Number: None

PATIENT
  Age: 20 Year
  Sex: Male
  Weight: 109.8 kg

DRUGS (1)
  1. GAMMAKED [Suspect]
     Indication: NEUROPATHY PERIPHERAL
     Dosage: FOR 2 DAYS
     Route: 041
     Dates: start: 20130627, end: 20130628

REACTIONS (5)
  - Haemolysis [None]
  - Headache [None]
  - Ocular icterus [None]
  - Pyrexia [None]
  - Rash [None]
